FAERS Safety Report 5115855-5 (Version None)
Quarter: 2006Q3

REPORT INFORMATION
  Report Type: 
  Country: None (occurrence: None)
  Receive Date: 20060926
  Receipt Date: 20060926
  Transmission Date: 20061208
  Serious: Yes (Other)
  Sender: FDA-Public Use
  Company Number: None

PATIENT
  Age: 47 Year
  Sex: Female
  Weight: 74.3899 kg

DRUGS (4)
  1. OXYMETAZOLINE HCL [Suspect]
     Dosage: 2 SPRAYS   ONCE   NASAL
     Route: 045
     Dates: start: 20060923, end: 20060923
  2. LEVOTHYROXINE SODIUM [Concomitant]
  3. ESTRADIOL INJ [Concomitant]
  4. ATORVASTATIN [Concomitant]

REACTIONS (12)
  - DYSPHAGIA [None]
  - EAR DISCOMFORT [None]
  - EAR PAIN [None]
  - EYE IRRITATION [None]
  - EYE PAIN [None]
  - GLOSSODYNIA [None]
  - LACRIMATION INCREASED [None]
  - NASAL DISCOMFORT [None]
  - PHARYNGOLARYNGEAL PAIN [None]
  - RHINALGIA [None]
  - SALIVARY HYPERSECRETION [None]
  - THROAT IRRITATION [None]
